FAERS Safety Report 21557674 (Version 1)
Quarter: 2022Q4

REPORT INFORMATION
  Report Type: Spontaneous
  Country: US (occurrence: US)
  Receive Date: 20221106
  Receipt Date: 20221106
  Transmission Date: 20230113
  Serious: No
  Sender: FDA-Public Use
  Company Number: US-ELI_LILLY_AND_COMPANY-US202211002584

PATIENT
  Sex: Female

DRUGS (2)
  1. HUMALOG [Suspect]
     Active Substance: INSULIN LISPRO
     Indication: Gestational diabetes
     Dosage: UNK, UNKNOWN
     Route: 065
  2. BASAGLAR [Suspect]
     Active Substance: INSULIN GLARGINE
     Indication: Gestational diabetes
     Dosage: UNK, UNKNOWN
     Route: 065

REACTIONS (1)
  - Maternal exposure during pregnancy [Recovered/Resolved]
